FAERS Safety Report 7971580-4 (Version None)
Quarter: 2011Q4

REPORT INFORMATION
  Report Type: 
  Country: None (occurrence: None)
  Receive Date: 20111212
  Receipt Date: 20111202
  Transmission Date: 20120403
  Serious: Yes (Other)
  Sender: FDA-Public Use
  Company Number: US-ABBOTT-11P-163-0873840-00

PATIENT
  Sex: Male
  Weight: 64.014 kg

DRUGS (2)
  1. HUMIRA [Suspect]
     Indication: CROHN'S DISEASE
     Dates: start: 20110913, end: 20111027
  2. LIALDA [Concomitant]
     Indication: CROHN'S DISEASE

REACTIONS (2)
  - TESTICULAR ABSCESS [None]
  - CROHN'S DISEASE [None]
